FAERS Safety Report 9711662 (Version 2)
Quarter: 2013Q4

REPORT INFORMATION
  Report Type: Spontaneous
  Country: US (occurrence: US)
  Receive Date: 20131126
  Receipt Date: 20131126
  Transmission Date: 20140711
  Serious: No
  Sender: FDA-Public Use
  Company Number: US-BRISTOL-MYERS SQUIBB COMPANY-19087386

PATIENT
  Age: 77 Year
  Sex: Male
  Weight: 81.63 kg

DRUGS (5)
  1. BYDUREON [Suspect]
     Indication: TYPE 2 DIABETES MELLITUS
     Dosage: NO OF DOSES-4?09-JUL-2013- 4TH DOSE?PRESCRIPTION #: 409774634
     Route: 058
     Dates: start: 201306
  2. ASPIRIN [Concomitant]
  3. LEVEMIR [Concomitant]
     Dosage: 1DF=60 UNITS?30 UNITS IN THE MORNING AND 30 UNITS AT NIGHT
  4. NOVOLOG [Concomitant]
     Dosage: 1DF=10 UNITS
  5. METFORMIN [Concomitant]

REACTIONS (3)
  - Injection site discolouration [Unknown]
  - Injection site bruising [Recovering/Resolving]
  - Injection site nodule [Not Recovered/Not Resolved]
